FAERS Safety Report 13539198 (Version 3)
Quarter: 2017Q4

REPORT INFORMATION
  Report Type: Report from Study
  Country: SG (occurrence: SG)
  Receive Date: 20170512
  Receipt Date: 20171023
  Transmission Date: 20180320
  Serious: Yes (Other)
  Sender: FDA-Public Use
  Company Number: SG-ROCHE-1934444

PATIENT

DRUGS (1)
  1. ALTEPLASE. [Suspect]
     Active Substance: ALTEPLASE
     Indication: ISCHAEMIC STROKE
     Dosage: 10 % GIVEN AS BOLUS AND 90 % INFUSED OVER 1 HOUR
     Route: 042

REACTIONS (1)
  - Cerebrovascular accident [Unknown]
